FAERS Safety Report 23414608 (Version 2)
Quarter: 2024Q1

REPORT INFORMATION
  Report Type: Spontaneous
  Country: CA (occurrence: CA)
  Receive Date: 20240118
  Receipt Date: 20240325
  Transmission Date: 20240410
  Serious: Yes (Hospitalization, Other)
  Sender: FDA-Public Use
  Company Number: None

PATIENT
  Age: 9 Year
  Sex: Female
  Weight: 27 kg

DRUGS (3)
  1. NORDITROPIN [Suspect]
     Active Substance: SOMATROPIN
     Indication: Short stature
     Dosage: 1.35 MILLIGRAM
     Route: 058
  2. NORDITROPIN [Suspect]
     Active Substance: SOMATROPIN
     Dosage: 1.2 MILLIGRAM
     Route: 058
  3. NORDITROPIN [Suspect]
     Active Substance: SOMATROPIN
     Dosage: 1050 MICROGRAM
     Route: 058

REACTIONS (8)
  - Anxiety [Not Recovered/Not Resolved]
  - Dehydration [Not Recovered/Not Resolved]
  - Heart rate increased [Not Recovered/Not Resolved]
  - Influenza [Not Recovered/Not Resolved]
  - Injection site paraesthesia [Not Recovered/Not Resolved]
  - Injection site plaque [Not Recovered/Not Resolved]
  - Medulloblastoma [Not Recovered/Not Resolved]
  - Injection site pain [Not Recovered/Not Resolved]
